FAERS Safety Report 16989006 (Version 1)
Quarter: 2019Q4

REPORT INFORMATION
  Report Type: Spontaneous
  Country: US (occurrence: US)
  Receive Date: 20190919
  Receipt Date: 20190919
  Transmission Date: 20200122
  Serious: Yes (Hospitalization)
  Sender: FDA-Public Use
  Company Number: None

PATIENT
  Age: 20 Year
  Sex: Male

DRUGS (5)
  1. FISH OIL [Concomitant]
     Active Substance: FISH OIL
  2. PREDNISONE. [Concomitant]
     Active Substance: PREDNISONE
  3. VITAMIN D3 [Concomitant]
     Active Substance: CHOLECALCIFEROL
  4. METFORMIN [Concomitant]
     Active Substance: METFORMIN HYDROCHLORIDE
  5. SIROLIMUS 0.5MG [Suspect]
     Active Substance: SIROLIMUS
     Indication: NEUTROPENIA
     Dosage: ?          OTHER DOSE:0.5MG;?
     Route: 048
     Dates: start: 20190629

REACTIONS (3)
  - Pyrexia [None]
  - Gastrointestinal haemorrhage [None]
  - Neutropenia [None]

NARRATIVE: CASE EVENT DATE: 20190701
